FAERS Safety Report 12069520 (Version 1)
Quarter: 2016Q1

REPORT INFORMATION
  Report Type: Spontaneous
  Country: US (occurrence: US)
  Receive Date: 20160211
  Receipt Date: 20160211
  Transmission Date: 20160526
  Serious: No
  Sender: FDA-Public Use
  Company Number: US-AMGEN-USASP2016014962

PATIENT
  Age: 51 Year
  Sex: Female

DRUGS (5)
  1. MOTRIN [Concomitant]
     Active Substance: IBUPROFEN
     Dosage: UNK
  2. TYLENOL [Concomitant]
     Active Substance: ACETAMINOPHEN
     Dosage: UNK
  3. ALBUTEROL                          /00139501/ [Concomitant]
     Active Substance: ALBUTEROL
     Indication: ASTHMA
     Dosage: UNK
  4. PROVENTIL [Concomitant]
     Active Substance: ALBUTEROL
     Indication: ASTHMA
     Dosage: UNK
  5. ENBREL [Suspect]
     Active Substance: ETANERCEPT
     Indication: RHEUMATOID ARTHRITIS
     Dosage: 50 MG,1 WEEKLY
     Route: 065
     Dates: start: 20160125

REACTIONS (10)
  - Unevaluable event [Unknown]
  - Condition aggravated [Unknown]
  - Decreased appetite [Unknown]
  - Chest discomfort [Unknown]
  - Pain [Unknown]
  - Viral infection [Unknown]
  - Diarrhoea [Recovered/Resolved]
  - Immune system disorder [Unknown]
  - Musculoskeletal stiffness [Not Recovered/Not Resolved]
  - Respiratory symptom [Unknown]

NARRATIVE: CASE EVENT DATE: 2016
